FAERS Safety Report 9717550 (Version 3)
Quarter: 2015Q3

REPORT INFORMATION
  Report Type: Spontaneous
  Country: US (occurrence: US)
  Receive Date: 20131127
  Receipt Date: 20150804
  Transmission Date: 20151125
  Serious: No
  Sender: FDA-Public Use
  Company Number: US-GILEAD-2009-0020867

PATIENT
  Age: 11 Year
  Sex: Male
  Weight: 34.02 kg

DRUGS (14)
  1. ASPIRIN LOW DOSE [Concomitant]
     Active Substance: ASPIRIN
  2. AZITHROMYCIN [Concomitant]
     Active Substance: AZITHROMYCIN ANHYDROUS
  3. ALBUTEROL. [Concomitant]
     Active Substance: ALBUTEROL
  4. CEFUROXIME. [Concomitant]
     Active Substance: CEFUROXIME
  5. FLOVENT [Concomitant]
     Active Substance: FLUTICASONE PROPIONATE
  6. DAILY VITAMIN +IRON [Concomitant]
  7. REVATIO [Concomitant]
     Active Substance: SILDENAFIL CITRATE
  8. LASIX [Concomitant]
     Active Substance: FUROSEMIDE
  9. COUMADIN [Concomitant]
     Active Substance: WARFARIN SODIUM
  10. SPIRONOLACTONE. [Concomitant]
     Active Substance: SPIRONOLACTONE
  11. LETAIRIS [Suspect]
     Active Substance: AMBRISENTAN
     Indication: PULMONARY ARTERIAL HYPERTENSION
     Route: 048
     Dates: start: 20080803, end: 200906
  12. COZAAR [Concomitant]
     Active Substance: LOSARTAN POTASSIUM
  13. POTASSIUM CHLORIDE. [Concomitant]
     Active Substance: POTASSIUM CHLORIDE
  14. PULMOZYME [Concomitant]
     Active Substance: DORNASE ALFA

REACTIONS (2)
  - White blood cell count decreased [Unknown]
  - Platelet count decreased [Unknown]
